FAERS Safety Report 24970619 (Version 1)
Quarter: 2025Q1

REPORT INFORMATION
  Report Type: Spontaneous
  Country: PL (occurrence: PL)
  Receive Date: 20250214
  Receipt Date: 20250214
  Transmission Date: 20250409
  Serious: Yes (Hospitalization)
  Sender: PFIZER
  Company Number: PL-PFM-2025-00688

PATIENT
  Age: 65 Year
  Sex: Female

DRUGS (2)
  1. ENCORAFENIB [Suspect]
     Active Substance: ENCORAFENIB
     Indication: Malignant melanoma
     Route: 065
     Dates: start: 2020
  2. BINIMETINIB [Suspect]
     Active Substance: BINIMETINIB
     Indication: Malignant melanoma
     Route: 065
     Dates: start: 2020

REACTIONS (6)
  - Blood pressure increased [Recovered/Resolved]
  - Chest pain [Recovered/Resolved]
  - Gastrointestinal disorder [Unknown]
  - Upper respiratory tract infection [Unknown]
  - General physical health deterioration [Recovered/Resolved]
  - Neurological symptom [Unknown]
